FAERS Safety Report 18122819 (Version 13)
Quarter: 2021Q4

REPORT INFORMATION
  Report Type: Report from Study
  Country: CA (occurrence: CA)
  Receive Date: 20200807
  Receipt Date: 20211230
  Transmission Date: 20220303
  Serious: Yes (Hospitalization, Other)
  Sender: FDA-Public Use
  Company Number: CA-BRISTOL-MYERS SQUIBB COMPANY-BMS-2019-064064

PATIENT
  Age: 69 Year
  Sex: Female
  Weight: 79 kg

DRUGS (4)
  1. ABATACEPT [Suspect]
     Active Substance: ABATACEPT
     Indication: Rheumatoid arthritis
     Dosage: 1000 MILLIGRAM, Q3WK
     Route: 065
     Dates: start: 20190527
  2. ABATACEPT [Suspect]
     Active Substance: ABATACEPT
     Dosage: 1000 MILLIGRAM, Q3WK
     Route: 042
     Dates: start: 201905
  3. METHOTREXATE [Concomitant]
     Active Substance: METHOTREXATE
     Indication: Product used for unknown indication
     Dosage: UNK
     Route: 065
  4. CANNABIS SATIVA SUBSP. INDICA TOP [Concomitant]
     Active Substance: CANNABIS SATIVA SUBSP. INDICA TOP
     Indication: Product used for unknown indication
     Dosage: UNK
     Route: 065

REACTIONS (29)
  - Upper limb fracture [Not Recovered/Not Resolved]
  - Pneumonia [Recovering/Resolving]
  - Haematoma [Not Recovered/Not Resolved]
  - Fall [Unknown]
  - Throat irritation [Unknown]
  - Productive cough [Unknown]
  - Rales [Unknown]
  - Tenderness [Unknown]
  - Chronic obstructive pulmonary disease [Unknown]
  - Visual impairment [Unknown]
  - Tooth fracture [Recovering/Resolving]
  - Arthritis [Unknown]
  - Blood glucose decreased [Unknown]
  - Prescribed overdose [Unknown]
  - Nausea [Unknown]
  - Vomiting [Recovered/Resolved]
  - Diarrhoea [Recovered/Resolved]
  - Illness [Recovered/Resolved]
  - Asthma [Unknown]
  - Poor venous access [Unknown]
  - Cough [Not Recovered/Not Resolved]
  - Dysphagia [Not Recovered/Not Resolved]
  - Dry mouth [Not Recovered/Not Resolved]
  - Off label use [Unknown]
  - Arthralgia [Not Recovered/Not Resolved]
  - Peripheral swelling [Unknown]
  - Dizziness [Unknown]
  - Pain in extremity [Unknown]
  - Mass [Unknown]

NARRATIVE: CASE EVENT DATE: 20190601
